FAERS Safety Report 9894540 (Version 1)
Quarter: 2014Q1

REPORT INFORMATION
  Report Type: Spontaneous
  Country: US (occurrence: US)
  Receive Date: 20140213
  Receipt Date: 20140213
  Transmission Date: 20141002
  Serious: Yes (Hospitalization)
  Sender: FDA-Public Use
  Company Number: US-ASTRAZENECA-2014SE09594

PATIENT
  Age: 16 Month
  Sex: Male

DRUGS (1)
  1. SYNAGIS [Suspect]
     Dosage: 6 DOSES OF PALIVIZUMAB OVER HIS 1ST WINTER AND 3 DOSES RECEIVED IN THE CURRENT SEASON
     Route: 030

REACTIONS (2)
  - Lower respiratory tract infection [Unknown]
  - Oxygen saturation decreased [Unknown]
